FAERS Safety Report 9964364 (Version 1)
Quarter: 2014Q1

REPORT INFORMATION
  Report Type: Spontaneous
  Country: FR (occurrence: FR)
  Receive Date: 20140305
  Receipt Date: 20140305
  Transmission Date: 20141002
  Serious: Yes (Hospitalization)
  Sender: FDA-Public Use
  Company Number: FR-GLAXOSMITHKLINE-B0971813A

PATIENT
  Age: 49 Year
  Sex: Female

DRUGS (4)
  1. ARIXTRA [Suspect]
     Indication: PULMONARY EMBOLISM
     Dosage: 5MG PER DAY
     Route: 058
     Dates: end: 20140109
  2. MEDROL [Concomitant]
     Dosage: 32MG PER DAY
  3. LEXOMIL [Concomitant]
     Dosage: 6MG PER DAY
  4. INEXIUM [Concomitant]
     Dosage: 20MG PER DAY

REACTIONS (3)
  - Pericardial effusion [Recovered/Resolved]
  - Dyspnoea [Recovered/Resolved]
  - Chest pain [Recovered/Resolved]
